FAERS Safety Report 4271986-3 (Version None)
Quarter: 2004Q1

REPORT INFORMATION
  Report Type: 
  Country: None (occurrence: None)
  Receive Date: 20040113
  Receipt Date: 20040105
  Transmission Date: 20041129
  Serious: Yes (Hospitalization)
  Sender: FDA-Public Use
  Company Number: 2003124090

PATIENT
  Age: 81 Year
  Sex: Female
  Weight: 54 kg

DRUGS (7)
  1. NEURONTIN [Suspect]
     Indication: RADICULAR PAIN
     Dosage: 400 MG (BID), ORAL
     Route: 048
     Dates: start: 20030909
  2. APOREX (PARACETAMOL, DEXTROPROPOXYPHENE HYDROCHLORIDE) [Concomitant]
  3. DICLOFENAC SODIUM [Concomitant]
  4. CALCIFEIOL (CALCIFEDIOL) [Concomitant]
  5. PANTOPRAZOLE (PANTOPRAZOLE) [Concomitant]
  6. DIMETICONE (DIMETICONE) [Concomitant]
  7. MEBEVERINE (MEBEVERINE) [Concomitant]

REACTIONS (3)
  - ACALCULIA [None]
  - AGRAPHIA [None]
  - ALEXIA [None]
